FAERS Safety Report 24204632 (Version 1)
Quarter: 2024Q3

REPORT INFORMATION
  Report Type: Spontaneous
  Country: US (occurrence: US)
  Receive Date: 20240813
  Receipt Date: 20240813
  Transmission Date: 20241017
  Serious: No
  Sender: PFIZER
  Company Number: US-PFIZER INC-202400234250

PATIENT
  Age: 87 Year
  Sex: Female

DRUGS (2)
  1. XELJANZ [Suspect]
     Active Substance: TOFACITINIB CITRATE
     Dosage: 5 MG, DAILY
  2. RESTASIS [Concomitant]
     Active Substance: CYCLOSPORINE
     Dosage: 1 DF, 1X/DAY (1 DROP INTO AFFECTED EYE ONCE DAILY)

REACTIONS (1)
  - Fatigue [Unknown]
